FAERS Safety Report 6372817-8 (Version None)
Quarter: 2009Q3

REPORT INFORMATION
  Report Type: 
  Country: None (occurrence: None)
  Receive Date: 20090924
  Receipt Date: 20081107
  Transmission Date: 20100115
  Serious: No
  Sender: FDA-Public Use
  Company Number: US-ASTRAZENECA-2008UW25033

PATIENT
  Age: 40 Year
  Sex: Male

DRUGS (2)
  1. SEROQUEL [Suspect]
     Dosage: 200 MG
     Route: 048
  2. SUBOXONE [Concomitant]

REACTIONS (1)
  - DRUG SCREEN POSITIVE [None]
